FAERS Safety Report 15941626 (Version 1)
Quarter: 2019Q1

REPORT INFORMATION
  Report Type: Spontaneous
  Country: US (occurrence: US)
  Receive Date: 20190208
  Receipt Date: 20190208
  Transmission Date: 20190417
  Serious: Yes (Life-Threatening, Disabling, Other)
  Sender: FDA-Public Use
  Company Number: None

PATIENT
  Sex: Female
  Weight: 47.25 kg

DRUGS (1)
  1. REGLAN [Suspect]
     Active Substance: METOCLOPRAMIDE HYDROCHLORIDE
     Indication: FOOD POISONING
     Dosage: ?          OTHER FREQUENCY:1 DOSE IV AT ER;?
     Route: 042
     Dates: start: 20160619, end: 20160619

REACTIONS (12)
  - Pyrexia [None]
  - Anxiety [None]
  - Weight decreased [None]
  - Syncope [None]
  - Muscle twitching [None]
  - Skin disorder [None]
  - Paraesthesia [None]
  - Dizziness [None]
  - Palpitations [None]
  - Hyperventilation [None]
  - Panic attack [None]
  - Hypoaesthesia [None]

NARRATIVE: CASE EVENT DATE: 20160619
